FAERS Safety Report 24047056 (Version 1)
Quarter: 2024Q3

REPORT INFORMATION
  Report Type: Spontaneous
  Country: FR (occurrence: FR)
  Receive Date: 20240703
  Receipt Date: 20240703
  Transmission Date: 20241017
  Serious: Yes (Hospitalization, Other)
  Sender: MERCK
  Company Number: None

PATIENT
  Age: 27 Year
  Sex: Female
  Weight: 41 kg

DRUGS (4)
  1. CASPOFUNGIN ACETATE [Suspect]
     Active Substance: CASPOFUNGIN ACETATE
     Indication: Intervertebral discitis
     Dosage: 150 MILLIGRAM, QD
     Route: 042
     Dates: start: 20240308, end: 20240417
  2. FLUCONAZOLE [Suspect]
     Active Substance: FLUCONAZOLE
     Indication: Intervertebral discitis
     Dosage: 400MG/TH MONDAY + WEDNESDAY + FRIDAY
     Route: 048
     Dates: start: 20240304
  3. FLUCONAZOLE [Suspect]
     Active Substance: FLUCONAZOLE
     Dosage: 200MG/TH TUESDAY + THURSDAY + SATURDAY + SUNDAY SINCE 02.04.24
     Route: 048
     Dates: start: 20240402
  4. NEFOPAM [Suspect]
     Active Substance: NEFOPAM
     Indication: Back pain
     Dosage: 80 MILLIGRAM, QD
     Route: 042
     Dates: start: 202402, end: 20240402

REACTIONS (1)
  - Partial seizures [Recovered/Resolved]

NARRATIVE: CASE EVENT DATE: 20240403
